FAERS Safety Report 8100365-3 (Version None)
Quarter: 2012Q1

REPORT INFORMATION
  Report Type: 
  Country: None (occurrence: None)
  Receive Date: 20120129
  Receipt Date: 20111125
  Transmission Date: 20120608
  Serious: No
  Sender: FDA-Public Use
  Company Number: US-ABBOTT-11P-163-0878012-00

PATIENT
  Age: 52 Year
  Sex: Female

DRUGS (6)
  1. MOBIC [Concomitant]
     Indication: BACK DISORDER
     Dosage: 40 MG, DAILY
  2. MORPHINE [Concomitant]
     Indication: PAIN
  3. OXYCODONE HCL [Concomitant]
     Indication: BREAKTHROUGH PAIN
  4. BACLOFEN [Concomitant]
     Indication: MUSCLE SPASMS
     Dosage: APPROXIMATELY 5 DAYS A WEEK 1 IN 1 DAY, APPROXIMATELY 5 DAYS A WEEK
  5. HUMIRA [Suspect]
     Indication: PSORIASIS
     Dates: start: 20101101
  6. KLONOPIN [Concomitant]
     Indication: MUSCLE SPASMS
     Dosage: 1 MG, DAILY

REACTIONS (5)
  - HEADACHE [None]
  - VOCAL CORD DISORDER [None]
  - ARTHRITIS [None]
  - CHEST DISCOMFORT [None]
  - PAIN [None]
